FAERS Safety Report 17516862 (Version 1)
Quarter: 2020Q1

REPORT INFORMATION
  Report Type: Spontaneous
  Country: US (occurrence: US)
  Receive Date: 20200228
  Receipt Date: 20200228
  Transmission Date: 20200409
  Serious: Yes (Hospitalization)
  Sender: FDA-Public Use
  Company Number: None

PATIENT
  Age: 71 Year
  Sex: Female

DRUGS (17)
  1. FERROUS SULF [Concomitant]
     Active Substance: FERROUS SULFATE
  2. SYNTHROID [Concomitant]
     Active Substance: LEVOTHYROXINE SODIUM
  3. TACROLIMUS 1MG [Suspect]
     Active Substance: TACROLIMUS
     Indication: RENAL TRANSPLANT
     Route: 048
     Dates: start: 20171016
  4. LOSARTAN. [Concomitant]
     Active Substance: LOSARTAN
  5. PRAVASTATIN. [Concomitant]
     Active Substance: PRAVASTATIN
  6. CENTRUM [Concomitant]
     Active Substance: VITAMINS
  7. CHLORTHALID [Concomitant]
     Active Substance: CHLORTHALIDONE
  8. ASPIRIN. [Concomitant]
     Active Substance: ASPIRIN
  9. VITAMIN C [Concomitant]
     Active Substance: ASCORBIC ACID
  10. FOSAMAX [Concomitant]
     Active Substance: ALENDRONATE SODIUM
  11. NORVASO [Concomitant]
  12. FISH OIL [Concomitant]
     Active Substance: FISH OIL
  13. FOLIC ACID. [Concomitant]
     Active Substance: FOLIC ACID
  14. IRON [Concomitant]
     Active Substance: IRON
  15. PROGRAF [Concomitant]
     Active Substance: TACROLIMUS
  16. TYLENOL [Concomitant]
     Active Substance: ACETAMINOPHEN
  17. VITAMIN E [Concomitant]
     Active Substance: .ALPHA.-TOCOPHEROL

REACTIONS (1)
  - Pulmonary oedema [None]

NARRATIVE: CASE EVENT DATE: 202002
